FAERS Safety Report 19038088 (Version 2)
Quarter: 2022Q2

REPORT INFORMATION
  Report Type: Spontaneous
  Country: US (occurrence: US)
  Receive Date: 20210322
  Receipt Date: 20220512
  Transmission Date: 20220720
  Serious: No
  Sender: FDA-Public Use
  Company Number: US-PFIZER INC-2021224349

PATIENT
  Age: 62 Year
  Sex: Female

DRUGS (2)
  1. XELJANZ XR [Suspect]
     Active Substance: TOFACITINIB CITRATE
     Indication: Rheumatoid arthritis
     Dosage: 11 MG, 1X/DAY
     Route: 048
     Dates: start: 2017
  2. TYLENOL [Concomitant]
     Active Substance: ACETAMINOPHEN
     Dosage: UNK

REACTIONS (17)
  - Therapeutic product effect incomplete [Unknown]
  - Product dose omission issue [Unknown]
  - Illness [Unknown]
  - Gait disturbance [Unknown]
  - Joint swelling [Unknown]
  - Discouragement [Recovering/Resolving]
  - Depression [Recovering/Resolving]
  - Fatigue [Unknown]
  - Arthritis [Recovering/Resolving]
  - Ear infection [Unknown]
  - Pain [Recovering/Resolving]
  - Vomiting [Unknown]
  - Food poisoning [Unknown]
  - Abdominal discomfort [Unknown]
  - Back pain [Unknown]
  - Arthralgia [Unknown]
  - Pain [Unknown]

NARRATIVE: CASE EVENT DATE: 20220101
